FAERS Safety Report 10357972 (Version 2)
Quarter: 2014Q3

REPORT INFORMATION
  Report Type: Report from Study
  Country: US (occurrence: US)
  Receive Date: 20140801
  Receipt Date: 20140823
  Transmission Date: 20150326
  Serious: Yes (Hospitalization, Other)
  Sender: FDA-Public Use
  Company Number: PHHO2014US010481

PATIENT
  Age: 70 Year
  Sex: Female
  Weight: 54.42 kg

DRUGS (11)
  1. AFINITOR [Suspect]
     Active Substance: EVEROLIMUS
     Indication: BREAST CANCER METASTATIC
     Dosage: 10 MG, QD
     Route: 048
     Dates: start: 20140128, end: 20140723
  2. NORCO [Concomitant]
     Active Substance: ACETAMINOPHEN\HYDROCODONE BITARTRATE
     Indication: PAIN
     Dosage: 10 MG, PRN
     Route: 048
     Dates: start: 20140207
  3. DIURETICS [Concomitant]
     Active Substance: UNSPECIFIED INGREDIENT
  4. QUESTRAN [Concomitant]
     Active Substance: CHOLESTYRAMINE
     Indication: BLOOD CHOLESTEROL
     Dosage: 5 PACKS, BID
     Dates: start: 20140715, end: 20140723
  5. CGS 20267 [Suspect]
     Active Substance: LETROZOLE
     Indication: BREAST CANCER METASTATIC
     Dosage: 2.5 MG, QD
     Route: 048
     Dates: start: 20140128, end: 20140723
  6. ACYCLOVIR. [Concomitant]
     Active Substance: ACYCLOVIR
     Indication: HERPES ZOSTER
     Dosage: UNK
     Dates: start: 20140723
  7. QUESTRAN [Concomitant]
     Active Substance: CHOLESTYRAMINE
     Indication: PAIN
  8. CGS 20267 [Suspect]
     Active Substance: LETROZOLE
     Dosage: 2.5 MG, QD
     Route: 048
     Dates: start: 20140729
  9. SYNTHROID [Concomitant]
     Active Substance: LEVOTHYROXINE SODIUM
     Indication: HYPOTHYROIDISM
     Dosage: 88 UG, UNK
  10. AFINITOR [Suspect]
     Active Substance: EVEROLIMUS
     Dosage: 10 MG, QD
     Route: 048
     Dates: start: 20140729
  11. HYDROCHLOROTHIAZIDE. [Concomitant]
     Active Substance: HYDROCHLOROTHIAZIDE
     Indication: HYPERTENSION
     Dosage: 25 MG, QD
     Route: 048

REACTIONS (1)
  - Supraventricular tachycardia [Recovered/Resolved]

NARRATIVE: CASE EVENT DATE: 20140723
